FAERS Safety Report 9290752 (Version 2)
Quarter: 2013Q2

REPORT INFORMATION
  Report Type: Spontaneous
  Country: US (occurrence: US)
  Receive Date: 20130515
  Receipt Date: 20130626
  Transmission Date: 20140414
  Serious: Yes (Other)
  Sender: FDA-Public Use
  Company Number: PHHY2013US047136

PATIENT
  Age: 65 Year
  Sex: Female

DRUGS (1)
  1. DOXYCYCLINE [Suspect]
     Indication: ROSACEA

REACTIONS (4)
  - Gastrointestinal mucosal necrosis [Recovered/Resolved]
  - Abdominal distension [Recovered/Resolved]
  - Fibrosis [Recovered/Resolved]
  - Abdominal pain upper [Recovered/Resolved]
